FAERS Safety Report 20718365 (Version 2)
Quarter: 2023Q2

REPORT INFORMATION
  Report Type: Spontaneous
  Country: US (occurrence: US)
  Receive Date: 20220418
  Receipt Date: 20230515
  Transmission Date: 20230721
  Serious: No
  Sender: FDA-Public Use
  Company Number: US-UCBSA-2021048197

PATIENT
  Sex: Female

DRUGS (1)
  1. NEUPRO [Suspect]
     Active Substance: ROTIGOTINE
     Indication: Parkinson^s disease
     Dosage: 2 MILLIGRAM

REACTIONS (6)
  - Nausea [Unknown]
  - Constipation [Unknown]
  - Anxiety [Unknown]
  - Parkinson^s disease [Unknown]
  - Product quality issue [Unknown]
  - Drug ineffective [Unknown]
